FAERS Safety Report 7399390-X (Version None)
Quarter: 2011Q2

REPORT INFORMATION
  Report Type: 
  Country: None (occurrence: None)
  Receive Date: 20110407
  Receipt Date: 20110217
  Transmission Date: 20111010
  Serious: Yes (Other)
  Sender: FDA-Public Use
  Company Number: PHHY2011US07413

PATIENT
  Sex: Female
  Weight: 77 kg

DRUGS (5)
  1. POLYETHYLENE GLYCOL [Concomitant]
  2. BENICAR [Concomitant]
  3. POTASSIUM [Concomitant]
  4. EXJADE [Suspect]
     Indication: IRON METABOLISM DISORDER
     Dosage: 1000 MG, DAILY
     Route: 048
     Dates: start: 20100319
  5. VERAPAMIL [Concomitant]

REACTIONS (6)
  - CONSTIPATION [None]
  - INTESTINAL FUNCTIONAL DISORDER [None]
  - RHINORRHOEA [None]
  - HEADACHE [None]
  - SEASONAL ALLERGY [None]
  - BRONCHITIS [None]
